FAERS Safety Report 26097068 (Version 1)
Quarter: 2025Q4

REPORT INFORMATION
  Report Type: Spontaneous
  Country: JP (occurrence: JP)
  Receive Date: 20251127
  Receipt Date: 20251127
  Transmission Date: 20260118
  Serious: Yes (Other)
  Sender: RANBAXY
  Company Number: JP-SUN PHARMACEUTICAL INDUSTRIES LTD-2025RR-537359

PATIENT
  Age: 3 Decade
  Sex: Female

DRUGS (2)
  1. MINOCYCLINE [Suspect]
     Active Substance: MINOCYCLINE HYDROCHLORIDE
     Indication: Oropharyngeal pain
     Dosage: 200 MILLIGRAM, DAILY
     Route: 065
  2. MINOCYCLINE [Suspect]
     Active Substance: MINOCYCLINE HYDROCHLORIDE
     Indication: Cough
     Dosage: 100 MILLIGRAM
     Route: 065

REACTIONS (5)
  - Mania [Recovering/Resolving]
  - Euphoric mood [Recovering/Resolving]
  - Insomnia [Recovering/Resolving]
  - Energy increased [Recovering/Resolving]
  - Binge eating [Recovering/Resolving]
